FAERS Safety Report 8478196-4 (Version None)
Quarter: 2012Q2

REPORT INFORMATION
  Report Type: 
  Country: None (occurrence: None)
  Receive Date: 20120629
  Receipt Date: 20120619
  Transmission Date: 20120825
  Serious: Yes (Hospitalization, Other)
  Sender: FDA-Public Use
  Company Number: US-ELI_LILLY_AND_COMPANY-US201008000727

PATIENT
  Sex: Female
  Weight: 58.957 kg

DRUGS (10)
  1. CALCIUM [Concomitant]
     Dosage: UNK
  2. FORTEO [Suspect]
     Indication: OSTEOPOROSIS
     Dosage: 20 UG, QD
     Route: 058
     Dates: start: 20081003
  3. FORTEO [Suspect]
     Dosage: 20 UG, QD
     Route: 058
  4. LASIX [Concomitant]
     Dosage: UNK
  5. SYNTHROID [Concomitant]
     Dosage: UNK
  6. OMEPRAZOLE [Concomitant]
     Dosage: UNK
  7. ATENOLOL [Concomitant]
     Dosage: UNK
  8. COUMADIN [Concomitant]
  9. POTASSIUM ACETATE [Concomitant]
     Dosage: UNK
  10. MULTI-VITAMIN [Concomitant]
     Dosage: UNK

REACTIONS (8)
  - PELVIC FRACTURE [None]
  - ANAEMIA [None]
  - GASTRIC HAEMORRHAGE [None]
  - BALANCE DISORDER [None]
  - BLOOD DISORDER [None]
  - FAECES DISCOLOURED [None]
  - GASTRIC PERFORATION [None]
  - FALL [None]
